FAERS Safety Report 6676326-8 (Version None)
Quarter: 2010Q1

REPORT INFORMATION
  Report Type: 
  Country: None (occurrence: None)
  Receive Date: 20100331
  Receipt Date: 20090516
  Transmission Date: 20100710
  Serious: Yes (Other)
  Sender: FDA-Public Use
  Company Number: 2009192080

PATIENT
  Sex: Male
  Weight: 95.7 kg

DRUGS (19)
  1. SUTENT [Suspect]
     Indication: METASTATIC RENAL CELL CARCINOMA
     Dosage: 50 MG, 1X/DAY, ORAL
     Route: 048
     Dates: start: 20080601
  2. PREDNISONE TAB [Concomitant]
  3. MILK OF MAGNESIA TAB [Concomitant]
  4. TRIAMCINOLONE (TRIAMCINOLONE) CREAM [Concomitant]
  5. KETOCONAZOLE (KETOCONAZOLE) SHAMPOO [Concomitant]
  6. METFORMIN HCL [Concomitant]
  7. TRETINOIN (TRETINOIN) CREAM [Concomitant]
  8. GLYBURIDE [Concomitant]
  9. SIMVASTATIN [Concomitant]
  10. FERROUS SULFATE TAB [Concomitant]
  11. MENTHOL/METHYL SALICYLATE (MENTHOL, METHYL SALICYLATE) CREAM [Concomitant]
  12. . [Concomitant]
  13. SYNTHROID [Concomitant]
  14. LASIX [Concomitant]
  15. FENOFIBRATE [Concomitant]
  16. CYPROHEPTADINE HCL [Concomitant]
  17. GABAPENTIN [Concomitant]
  18. FISH OIL (FISH OIL) [Concomitant]
  19. FINASTERIDE [Concomitant]

REACTIONS (1)
  - RASH [None]
